FAERS Safety Report 21575420 (Version 1)
Quarter: 2022Q4

REPORT INFORMATION
  Report Type: Spontaneous
  Country: DE (occurrence: DE)
  Receive Date: 20221110
  Receipt Date: 20221110
  Transmission Date: 20230112
  Serious: Yes (Hospitalization)
  Sender: FDA-Public Use
  Company Number: DE-ABBVIE-4135264

PATIENT
  Age: 27 Year
  Sex: Male
  Weight: 80 kg

DRUGS (8)
  1. RINVOQ [Suspect]
     Active Substance: UPADACITINIB
     Indication: Dermatitis atopic
     Route: 048
     Dates: start: 202111, end: 2022
  2. RINVOQ [Suspect]
     Active Substance: UPADACITINIB
     Indication: Dermatitis atopic
     Route: 048
     Dates: start: 2022
  3. CLOBETASOL [Concomitant]
     Active Substance: CLOBETASOL
     Indication: Product used for unknown indication
     Dosage: LOTION
     Route: 061
  4. HYDROXYZINE [Concomitant]
     Active Substance: HYDROXYZINE HYDROCHLORIDE
     Indication: Product used for unknown indication
     Route: 065
  5. ABROCITINIB [Concomitant]
     Active Substance: ABROCITINIB
     Indication: Product used for unknown indication
     Dosage: END DATE WAS 2022.
     Route: 065
     Dates: start: 20220609
  6. ABROCITINIB [Concomitant]
     Active Substance: ABROCITINIB
     Indication: Product used for unknown indication
     Route: 065
     Dates: start: 20220808
  7. CIBINQO [Concomitant]
     Active Substance: ABROCITINIB
     Indication: Product used for unknown indication
     Dates: start: 20220609
  8. BARICITINIB [Concomitant]
     Active Substance: BARICITINIB
     Indication: Product used for unknown indication
     Route: 065

REACTIONS (27)
  - Nausea [Unknown]
  - Vomiting [Unknown]
  - Dizziness [Unknown]
  - Head discomfort [Unknown]
  - Skin ulcer [Unknown]
  - Disturbance in attention [Unknown]
  - Paternal exposure during pregnancy [Unknown]
  - Appetite disorder [Unknown]
  - Sluggishness [Unknown]
  - Influenza [Recovered/Resolved]
  - Dyspnoea [Unknown]
  - Paraesthesia [Unknown]
  - Dermatitis atopic [Unknown]
  - Pruritus [Not Recovered/Not Resolved]
  - Oral mucosal eruption [Unknown]
  - Eczema [Unknown]
  - Mood swings [Unknown]
  - Migraine [Unknown]
  - Stress [Unknown]
  - Speech disorder [Unknown]
  - Abdominal pain [Unknown]
  - Adverse food reaction [Unknown]
  - Insomnia [Unknown]
  - Gastrointestinal fungal infection [Unknown]
  - Eczema nummular [Unknown]
  - Herpes zoster [Unknown]
  - Musculoskeletal discomfort [Unknown]

NARRATIVE: CASE EVENT DATE: 20220101
